FAERS Safety Report 8533270 (Version 2)
Quarter: 2012Q4

REPORT INFORMATION
  Report Type: 
  Country: US (occurrence: US)
  Receive Date: 20120427
  Receipt Date: 20121025
  Transmission Date: 20130627
  Serious: Yes (Hospitalization)
  Sender: FDA-Public Use
  Company Number: US-BAYER-2012-040321

PATIENT
  Age: 28 Year
  Sex: Female
  Weight: 63.49 kg

DRUGS (13)
  1. YASMIN [Suspect]
     Indication: CONTRACEPTION
     Dosage: UNK
     Dates: start: 200512, end: 200807
  2. YASMIN [Suspect]
     Indication: ACNE
  3. OCELLA [Suspect]
     Indication: CONTRACEPTION
     Dosage: UNK
     Dates: start: 200807, end: 200810
  4. OCELLA [Suspect]
     Indication: ACNE
     Dosage: UNK
     Dates: start: 200904, end: 20090723
  5. YAZ [Suspect]
     Indication: CONTRACEPTION
     Dosage: UNK
     Dates: start: 200812, end: 200903
  6. YAZ [Suspect]
     Indication: ACNE
  7. NSAID^S [Concomitant]
  8. HYDROCODONE [Concomitant]
     Indication: PAIN
     Dosage: 1 tab
     Dates: start: 20090721
  9. IBUPROFEN [Concomitant]
     Dosage: 400 mg, UNK
     Dates: start: 20090723
  10. VICODIN [Concomitant]
  11. FLEXERIL [Concomitant]
  12. NAPROXEN [Concomitant]
  13. CYCLOBENZAPRINE [Concomitant]

REACTIONS (8)
  - Pulmonary embolism [None]
  - Pulmonary infarction [None]
  - Chest pain [None]
  - Injury [None]
  - General physical health deterioration [None]
  - Emotional distress [None]
  - Anxiety [None]
  - Pain [None]
